FAERS Safety Report 4418121-6 (Version None)
Quarter: 2004Q3

REPORT INFORMATION
  Report Type: 
  Country: None (occurrence: None)
  Receive Date: 20040805
  Receipt Date: 20040805
  Transmission Date: 20050211
  Serious: Yes (Other)
  Sender: FDA-Public Use
  Company Number: None

PATIENT
  Sex: Female

DRUGS (7)
  1. ENBREL [Suspect]
     Indication: RHEUMATOID ARTHRITIS
     Dosage: 25MG SQ TWICE WEEKLY
     Route: 058
  2. PREMARIN [Concomitant]
  3. FOLATE [Concomitant]
  4. HYDROCHLOROTHIAZIDE [Concomitant]
  5. ATENOLOL [Concomitant]
  6. NAPRALEN [Concomitant]
  7. GLUCOSAMINE/CHONDROITIN [Concomitant]

REACTIONS (1)
  - THYROID NEOPLASM [None]
